FAERS Safety Report 13113069 (Version 2)
Quarter: 2017Q1

REPORT INFORMATION
  Report Type: Spontaneous
  Country: US (occurrence: US)
  Receive Date: 20170113
  Receipt Date: 20170324
  Transmission Date: 20170428
  Serious: Yes (Other)
  Sender: FDA-Public Use
  Company Number: US-SAOL THERAPEUTICS-2017SAO00056

PATIENT
  Sex: Male

DRUGS (1)
  1. BACLOFEN. [Suspect]
     Active Substance: BACLOFEN
     Dosage: 96 ?G, \DAY
     Route: 037

REACTIONS (5)
  - Infection [Recovered/Resolved]
  - Implant site reaction [Recovered/Resolved]
  - Medical device site infection [None]
  - Implant site erosion [Recovered/Resolved]
  - Weight decreased [Unknown]
